FAERS Safety Report 10427476 (Version 2)
Quarter: 2014Q4

REPORT INFORMATION
  Report Type: Spontaneous
  Country: US (occurrence: US)
  Receive Date: 20140903
  Receipt Date: 20141007
  Transmission Date: 20150528
  Serious: Yes (Other)
  Sender: FDA-Public Use
  Company Number: US-ASTELLAS-2014US010562

PATIENT
  Sex: Female

DRUGS (1)
  1. PROTOPIC [Suspect]
     Active Substance: TACROLIMUS
     Indication: ECZEMA
     Dosage: UNK UNK, UNKNOWN FREQ.
     Route: 061
     Dates: start: 201111, end: 201406

REACTIONS (4)
  - Off label use [Unknown]
  - Lower limb fracture [Unknown]
  - Meniscus injury [Unknown]
  - Joint injury [Unknown]

NARRATIVE: CASE EVENT DATE: 201111
